FAERS Safety Report 25181720 (Version 2)
Quarter: 2025Q2

REPORT INFORMATION
  Report Type: Spontaneous
  Country: US (occurrence: US)
  Receive Date: 20250410
  Receipt Date: 20250417
  Transmission Date: 20250717
  Serious: Yes (Hospitalization, Other)
  Sender: AUROBINDO
  Company Number: US-AUROBINDO-AUR-APL-2025-018677

PATIENT
  Age: 36 Year
  Sex: Female

DRUGS (20)
  1. LEVETIRACETAM [Suspect]
     Active Substance: LEVETIRACETAM
     Indication: Status epilepticus
     Route: 042
  2. ATOMOXETINE [Suspect]
     Active Substance: ATOMOXETINE
     Indication: Major depression
     Route: 065
  3. KETAMINE HYDROCHLORIDE [Suspect]
     Active Substance: KETAMINE HYDROCHLORIDE
     Indication: Major depression
     Route: 042
  4. KETAMINE HYDROCHLORIDE [Suspect]
     Active Substance: KETAMINE HYDROCHLORIDE
     Indication: Status epilepticus
     Route: 030
  5. LORAZEPAM [Suspect]
     Active Substance: LORAZEPAM
     Indication: Status epilepticus
     Route: 042
  6. DIAZEPAM [Suspect]
     Active Substance: DIAZEPAM
     Indication: Status epilepticus
     Route: 042
  7. LIDOCAINE [Interacting]
     Active Substance: LIDOCAINE
     Indication: Induction of anaesthesia
     Route: 042
  8. CLOMIPRAMINE HYDROCHLORIDE [Interacting]
     Active Substance: CLOMIPRAMINE HYDROCHLORIDE
     Indication: Major depression
     Dosage: 150 MILLIGRAM, ONCE A DAY
     Route: 065
  9. GABAPENTIN [Suspect]
     Active Substance: GABAPENTIN
     Indication: Major depression
     Dosage: 1200 MILLIGRAM, TWO TIMES A DAY
     Route: 065
  10. PROPOFOL [Suspect]
     Active Substance: PROPOFOL
     Indication: Major depression
     Route: 042
  11. PROPOFOL [Suspect]
     Active Substance: PROPOFOL
     Indication: Status epilepticus
     Route: 042
  12. PROPOFOL [Suspect]
     Active Substance: PROPOFOL
     Route: 041
  13. MIDAZOLAM [Suspect]
     Active Substance: MIDAZOLAM
     Indication: Major depression
     Route: 042
  14. MIDAZOLAM [Suspect]
     Active Substance: MIDAZOLAM
     Indication: Status epilepticus
     Route: 042
  15. MIDAZOLAM [Suspect]
     Active Substance: MIDAZOLAM
     Route: 041
  16. METHOHEXITAL [Concomitant]
     Active Substance: METHOHEXITAL
     Indication: Product used for unknown indication
     Route: 065
  17. SUCCINYLCHOLINE CHLORIDE [Concomitant]
     Active Substance: SUCCINYLCHOLINE CHLORIDE
     Indication: Product used for unknown indication
     Route: 065
  18. LACOSAMIDE [Concomitant]
     Active Substance: LACOSAMIDE
     Indication: Seizure prophylaxis
     Dosage: 100 MILLIGRAM, TWO TIMES A DAY
     Route: 065
  19. LITHIUM [Concomitant]
     Active Substance: LITHIUM
     Indication: Suicidal behaviour
     Route: 065
  20. SUCCINYLCHOLINE [Concomitant]
     Active Substance: SUCCINYLCHOLINE
     Indication: Product used for unknown indication
     Route: 065

REACTIONS (3)
  - Drug ineffective [Unknown]
  - Status epilepticus [Recovering/Resolving]
  - Drug interaction [Unknown]
